FAERS Safety Report 25096170 (Version 1)
Quarter: 2025Q1

REPORT INFORMATION
  Report Type: Spontaneous
  Country: HU (occurrence: HU)
  Receive Date: 20250319
  Receipt Date: 20250319
  Transmission Date: 20250409
  Serious: Yes (Death, Hospitalization, Other)
  Sender: ABBVIE
  Company Number: HU-ASTELLAS-2025-AER-014582

PATIENT
  Sex: Female

DRUGS (2)
  1. VENETOCLAX [Suspect]
     Active Substance: VENETOCLAX
     Indication: Product used for unknown indication
     Route: 048
  2. GILTERITINIB [Suspect]
     Active Substance: GILTERITINIB
     Indication: Product used for unknown indication
     Route: 065
     Dates: start: 202101

REACTIONS (12)
  - Death [Fatal]
  - Fibrosis [Unknown]
  - Bone marrow disorder [Unknown]
  - Gastrointestinal haemorrhage [Unknown]
  - COVID-19 [Unknown]
  - Cytopenia [Unknown]
  - Jaundice [Unknown]
  - Anaemia [Unknown]
  - Hepatosplenomegaly [Unknown]
  - Monocytosis [Unknown]
  - Blood lactate dehydrogenase increased [Unknown]
  - Thrombocytopenia [Unknown]

NARRATIVE: CASE EVENT DATE: 20220201
